FAERS Safety Report 10595545 (Version 1)
Quarter: 2014Q4

REPORT INFORMATION
  Report Type: Spontaneous
  Country: US (occurrence: US)
  Receive Date: 20141120
  Receipt Date: 20141120
  Transmission Date: 20150529
  Serious: Yes (Other)
  Sender: FDA-Public Use
  Company Number: US-ASTRAZENECA-2014SE87767

PATIENT
  Age: 56 Year
  Sex: Male
  Weight: 118 kg

DRUGS (39)
  1. PRILOSEC [Suspect]
     Active Substance: OMEPRAZOLE MAGNESIUM
     Route: 048
  2. MAGNESIUM CITRATE. [Concomitant]
     Active Substance: MAGNESIUM CITRATE
  3. ROBAXIN [Concomitant]
     Active Substance: METHOCARBAMOL
     Indication: MUSCLE SPASMS
  4. TOPIRAMATE. [Concomitant]
     Active Substance: TOPIRAMATE
  5. INSULIN [Concomitant]
     Active Substance: INSULIN NOS
     Indication: DIABETES MELLITUS
  6. NITROSTAT [Concomitant]
     Active Substance: NITROGLYCERIN
     Indication: CHEST PAIN
  7. ZITHROMAX [Concomitant]
     Active Substance: AZITHROMYCIN DIHYDRATE
  8. NOVOLIN [Concomitant]
     Active Substance: INSULIN HUMAN
  9. PROMETHAZINE HCL [Concomitant]
     Active Substance: PROMETHAZINE HYDROCHLORIDE
     Indication: NAUSEA
  10. FISH OIL [Concomitant]
     Active Substance: FISH OIL
  11. BISACODYL. [Concomitant]
     Active Substance: BISACODYL
  12. LYRICA [Concomitant]
     Active Substance: PREGABALIN
     Indication: HYPERTENSION
  13. DIOVAN HCT [Concomitant]
     Active Substance: HYDROCHLOROTHIAZIDE\VALSARTAN
     Indication: HYPERTENSION
  14. PERCOCET [Concomitant]
     Active Substance: ACETAMINOPHEN\OXYCODONE HYDROCHLORIDE
  15. NAPROXEN. [Concomitant]
     Active Substance: NAPROXEN
  16. TRAMADOL [Concomitant]
     Active Substance: TRAMADOL
  17. LIDOCAINE. [Concomitant]
     Active Substance: LIDOCAINE
  18. AMLODIPINE BESYLATE. [Concomitant]
     Active Substance: AMLODIPINE BESYLATE
  19. ZETIA [Concomitant]
     Active Substance: EZETIMIBE
     Indication: HYPERLIPIDAEMIA
  20. GLUCOPHAGE [Concomitant]
     Active Substance: METFORMIN HYDROCHLORIDE
     Indication: DIABETES MELLITUS
  21. VOLTAREN [Concomitant]
     Active Substance: DICLOFENAC SODIUM
  22. TRICOR [Concomitant]
     Active Substance: FENOFIBRATE
     Indication: CARDIAC DISORDER
  23. ASPIRIN. [Concomitant]
     Active Substance: ASPIRIN
  24. LANTUS [Concomitant]
     Active Substance: INSULIN GLARGINE
  25. NEURONTIN [Concomitant]
     Active Substance: GABAPENTIN
     Indication: NEUROPATHY PERIPHERAL
  26. AMBIEN [Concomitant]
     Active Substance: ZOLPIDEM TARTRATE
     Indication: INSOMNIA
  27. PLAVIX [Concomitant]
     Active Substance: CLOPIDOGREL BISULFATE
  28. FUROSEMIDE. [Concomitant]
     Active Substance: FUROSEMIDE
  29. PRILOCAINE [Concomitant]
     Active Substance: PRILOCAINE
  30. BYDUREON [Suspect]
     Active Substance: EXENATIDE
     Route: 058
  31. CRESTOR [Suspect]
     Active Substance: ROSUVASTATIN CALCIUM
     Indication: CARDIAC DISORDER
     Dosage: 20 MG, 1 DF 3 TABS AT NIGHT
     Route: 048
  32. ALLOPURINOL. [Concomitant]
     Active Substance: ALLOPURINOL
  33. PEG 3350 + ELECTROLYTES [Concomitant]
  34. HUMALOG [Concomitant]
     Active Substance: INSULIN LISPRO
  35. CHERATUSSIN AC [Concomitant]
     Active Substance: CODEINE PHOSPHATE\GUAIFENESIN
     Indication: COUGH
  36. LEVAQUIN [Concomitant]
     Active Substance: LEVOFLOXACIN
  37. METOPROLOL TARTRATE. [Concomitant]
     Active Substance: METOPROLOL TARTRATE
  38. OPANA ER [Concomitant]
     Active Substance: OXYMORPHONE HYDROCHLORIDE
  39. MELOXICAM. [Concomitant]
     Active Substance: MELOXICAM

REACTIONS (1)
  - Coronary artery disease [Unknown]
